FAERS Safety Report 12280790 (Version 1)
Quarter: 2016Q2

REPORT INFORMATION
  Report Type: Spontaneous
  Country: US (occurrence: US)
  Receive Date: 20160419
  Receipt Date: 20160419
  Transmission Date: 20160815
  Serious: Yes (Other)
  Sender: FDA-Public Use
  Company Number: US-DRREDDYS-DRL/USA/16/0078607

PATIENT
  Age: 37 Year
  Sex: Female
  Weight: 151.95 kg

DRUGS (1)
  1. HABITROL [Suspect]
     Active Substance: NICOTINE
     Indication: SMOKING CESSATION THERAPY
     Route: 061

REACTIONS (9)
  - Overdose [Unknown]
  - Product quality issue [Unknown]
  - Erythema [Unknown]
  - Limb operation [Unknown]
  - Scar [Unknown]
  - Skin wrinkling [Unknown]
  - Nicotine dependence [Unknown]
  - Treatment noncompliance [Unknown]
  - Pruritus [Unknown]
